FAERS Safety Report 24799781 (Version 1)
Quarter: 2025Q1

REPORT INFORMATION
  Report Type: Spontaneous
  Country: AR (occurrence: AR)
  Receive Date: 20250102
  Receipt Date: 20250102
  Transmission Date: 20250408
  Serious: Yes (Other)
  Sender: BAYER HEALTHCARE PHARMACEUTICALS INC.
  Company Number: AR-BAYER-2024A183947

PATIENT
  Age: 58 Year
  Sex: Male

DRUGS (1)
  1. ULTRAVIST [Suspect]
     Active Substance: IOPROMIDE
     Indication: Product used for unknown indication
     Dates: start: 20241223, end: 20241223

REACTIONS (3)
  - Nasal congestion [Unknown]
  - Rash papular [Unknown]
  - Erythema [Unknown]

NARRATIVE: CASE EVENT DATE: 20241223
